FAERS Safety Report 8276265-5 (Version None)
Quarter: 2012Q2

REPORT INFORMATION
  Report Type: 
  Country: None (occurrence: None)
  Receive Date: 20120412
  Receipt Date: 20120406
  Transmission Date: 20120825
  Serious: Yes (Other)
  Sender: FDA-Public Use
  Company Number: PHHY2012FR029489

PATIENT
  Sex: Female

DRUGS (9)
  1. BISOPROLOL FUMARATE [Concomitant]
  2. ACETAMINOPHEN [Concomitant]
  3. FENTANYL CITRATE [Concomitant]
  4. RASILEZ HCT [Suspect]
     Indication: HYPERTENSION
     Dosage: 1 DF, DAILY
     Dates: start: 20100701, end: 20120302
  5. FUROSEMIDE [Concomitant]
  6. LERCANDIPINE [Concomitant]
  7. EUPRESSYL [Concomitant]
  8. ASPIRIN [Concomitant]
  9. GLICAZIDE [Concomitant]

REACTIONS (2)
  - HEPATIC ENZYME INCREASED [None]
  - CYTOLYTIC HEPATITIS [None]
